FAERS Safety Report 24183046 (Version 1)
Quarter: 2024Q3

REPORT INFORMATION
  Report Type: Report from Study
  Country: PK (occurrence: PK)
  Receive Date: 20240807
  Receipt Date: 20240807
  Transmission Date: 20241017
  Serious: Yes (Death, Other)
  Sender: NOVARTIS
  Company Number: PK-002147023-NVSC2024PK159350

PATIENT
  Sex: Female
  Weight: 62 kg

DRUGS (1)
  1. AFINITOR [Suspect]
     Active Substance: EVEROLIMUS
     Indication: Neuroendocrine tumour
     Dosage: 10 MG (1)
     Route: 048
     Dates: start: 20220817

REACTIONS (2)
  - Neuroendocrine tumour [Fatal]
  - Malignant neoplasm progression [Fatal]
